FAERS Safety Report 7381205-7 (Version None)
Quarter: 2011Q1

REPORT INFORMATION
  Report Type: 
  Country: None (occurrence: None)
  Receive Date: 20110329
  Receipt Date: 20110322
  Transmission Date: 20110831
  Serious: Yes (Other)
  Sender: FDA-Public Use
  Company Number: VN-MPIJNJ-2011-00142

PATIENT

DRUGS (3)
  1. MELPHALAN [Concomitant]
     Indication: CHEMOTHERAPY
     Dosage: 2.5 MG, UNK
  2. PREDNISONE [Concomitant]
     Dosage: 20 MG, UNK
     Dates: end: 20110101
  3. VELCADE [Suspect]
     Indication: MULTIPLE MYELOMA
     Dosage: 2 MG, UNK
     Route: 042
     Dates: start: 20100901, end: 20110111

REACTIONS (5)
  - PERICARDIAL EFFUSION [None]
  - HYPOTENSION [None]
  - GENERALISED OEDEMA [None]
  - WEIGHT INCREASED [None]
  - PLEURAL EFFUSION [None]
